FAERS Safety Report 7647958-5 (Version None)
Quarter: 2011Q3

REPORT INFORMATION
  Report Type: 
  Country: None (occurrence: None)
  Receive Date: 20110801
  Receipt Date: 20110721
  Transmission Date: 20111222
  Serious: Yes (Other)
  Sender: FDA-Public Use
  Company Number: US-BAYER-2010-007092

PATIENT
  Age: 35 Year
  Sex: Female
  Weight: 58.957 kg

DRUGS (7)
  1. CIPROFLOXACIN HCL [Concomitant]
     Dosage: 500 MG, BID
     Route: 048
     Dates: start: 20071025
  2. MYLANTA [ALUMINIUM HYDROXIDE,MAGNESIUM HYDROXIDE,SIMETICONE] [Concomitant]
  3. TYLENOL W/ CODEINE [Concomitant]
     Dosage: UNK
     Dates: start: 20071025
  4. TYLENOL-500 [Concomitant]
  5. YAZ [Suspect]
     Dosage: UNK
     Dates: start: 20071001
  6. XODOL [Concomitant]
     Dosage: UNK
     Dates: start: 20070922
  7. YAZ [Suspect]
     Dosage: UNK
     Dates: start: 20071101

REACTIONS (8)
  - POLLAKIURIA [None]
  - PAIN [None]
  - CHOLELITHIASIS [None]
  - GALLBLADDER DISORDER [None]
  - CHOLECYSTITIS CHRONIC [None]
  - DEPRESSION [None]
  - BREAST CYST [None]
  - INJURY [None]
